FAERS Safety Report 4479423-0 (Version None)
Quarter: 2004Q4

REPORT INFORMATION
  Report Type: 
  Country: None (occurrence: None)
  Receive Date: 20041015
  Receipt Date: 20041008
  Transmission Date: 20050328
  Serious: Yes (Hospitalization)
  Sender: FDA-Public Use
  Company Number: 2004237696FR

PATIENT
  Age: 14 Year
  Sex: Male

DRUGS (2)
  1. VANTIN [Suspect]
     Dosage: 200 MG, DAILY, ORAL
     Route: 048
     Dates: start: 20020615, end: 20020615
  2. SURALGAN (TIAPROFENIC ACID) TABLET [Suspect]
     Dosage: 1 DF, QD, ORAL
     Route: 048
     Dates: start: 20020615, end: 20020615

REACTIONS (1)
  - ANGIONEUROTIC OEDEMA [None]
